FAERS Safety Report 17139912 (Version 1)
Quarter: 2019Q4

REPORT INFORMATION
  Report Type: Spontaneous
  Country: US (occurrence: US)
  Receive Date: 20191211
  Receipt Date: 20191211
  Transmission Date: 20200122
  Serious: Yes (Disabling)
  Sender: FDA-Public Use
  Company Number: US-ELI_LILLY_AND_COMPANY-US201912000720

PATIENT
  Age: 60 Year
  Sex: Female

DRUGS (1)
  1. HUMALOG [Suspect]
     Active Substance: INSULIN LISPRO
     Indication: TYPE 1 DIABETES MELLITUS
     Dosage: 12 DOSAGE FORM, PRN (WITH MEALS)
     Route: 065
     Dates: start: 2006

REACTIONS (4)
  - Diabetes mellitus inadequate control [Unknown]
  - Neuropathy peripheral [Unknown]
  - Visual impairment [Unknown]
  - Depression [Unknown]
